FAERS Safety Report 6553705-0 (Version None)
Quarter: 2010Q1

REPORT INFORMATION
  Report Type: 
  Country: None (occurrence: None)
  Receive Date: 20100125
  Receipt Date: 20100125
  Transmission Date: 20100710
  Serious: No
  Sender: FDA-Public Use
  Company Number: None

PATIENT
  Sex: Female
  Weight: 66.6788 kg

DRUGS (2)
  1. ONGLYZA [Suspect]
     Indication: DIABETES MELLITUS
     Dosage: 2.5 MG DAILY
     Dates: start: 20091223
  2. ONGLYZA [Suspect]
     Indication: DIABETES MELLITUS
     Dosage: 2.5 MG DAILY
     Dates: start: 20100110

REACTIONS (3)
  - HEADACHE [None]
  - MALAISE [None]
  - NAUSEA [None]
